FAERS Safety Report 4514300-8 (Version None)
Quarter: 2004Q4

REPORT INFORMATION
  Report Type: 
  Country: None (occurrence: None)
  Receive Date: 20041124
  Receipt Date: 20041109
  Transmission Date: 20050328
  Serious: Yes (Death, Life-Threatening)
  Sender: FDA-Public Use
  Company Number: 200409076

PATIENT
  Age: 79 Year
  Sex: Female
  Weight: 52.6 kg

DRUGS (5)
  1. DYSPORT (BOTULINUM TOXIN TYPE A) [Suspect]
     Indication: TORTICOLLIS
     Dosage: 700 UNITS ONCE IM
     Route: 030
     Dates: start: 20040415
  2. WARFARIN SODIUM [Concomitant]
  3. RISEDRONATE SODIUM [Concomitant]
  4. PARACETAMOL [Concomitant]
  5. FRUMIL [Concomitant]

REACTIONS (6)
  - ACCIDENTAL EXPOSURE [None]
  - ASTHENIA [None]
  - BRONCHOPNEUMONIA [None]
  - DYSPHAGIA [None]
  - MEDICATION ERROR [None]
  - SUDDEN DEATH [None]
